FAERS Safety Report 8070741-6 (Version None)
Quarter: 2011Q4

REPORT INFORMATION
  Report Type: 
  Country: None (occurrence: None)
  Receive Date: 20111221
  Receipt Date: 20101204
  Transmission Date: 20120403
  Serious: Yes (Other)
  Sender: FDA-Public Use
  Company Number: PHHY2010US82542

PATIENT
  Sex: Female

DRUGS (1)
  1. EXJADE [Suspect]
     Dosage: 40 MG/KG/ DAY

REACTIONS (2)
  - DRUG INEFFECTIVE [None]
  - SERUM FERRITIN INCREASED [None]
